FAERS Safety Report 21478131 (Version 1)
Quarter: 2022Q4

REPORT INFORMATION
  Report Type: Spontaneous
  Country: AR (occurrence: AR)
  Receive Date: 20221019
  Receipt Date: 20221019
  Transmission Date: 20230112
  Serious: Yes (Other)
  Sender: FDA-Public Use
  Company Number: AR-PFIZER INC-PV202200084290

PATIENT
  Age: 74 Year
  Sex: Male
  Weight: 100 kg

DRUGS (6)
  1. VYNDAQEL [Suspect]
     Active Substance: TAFAMIDIS MEGLUMINE
     Indication: Amyloidosis senile
     Dosage: 61 MG, DAILY
  2. VYNDAMAX [Suspect]
     Active Substance: TAFAMIDIS
     Indication: Amyloidosis senile
  3. LOSARTAN POTASSIUM [Concomitant]
     Active Substance: LOSARTAN POTASSIUM
  4. BISOPROLOL FUMARATE [Concomitant]
     Active Substance: BISOPROLOL FUMARATE
  5. FUROSEMIDE [Concomitant]
     Active Substance: FUROSEMIDE
  6. SPIRONOLACTONE [Concomitant]
     Active Substance: SPIRONOLACTONE

REACTIONS (18)
  - Cardiac failure [Unknown]
  - Tricuspid valve incompetence [Unknown]
  - Pericardial effusion [Unknown]
  - Ventricular hypokinesia [Unknown]
  - Left ventricular dysfunction [Unknown]
  - Hypertension [Unknown]
  - Overweight [Unknown]
  - Stress [Unknown]
  - Blood glucose increased [Unknown]
  - Blood bilirubin increased [Unknown]
  - Bilirubin conjugated increased [Unknown]
  - Left ventricular hypertrophy [Unknown]
  - Left ventricular dilatation [Unknown]
  - Left atrial dilatation [Unknown]
  - Right atrial dilatation [Unknown]
  - Right ventricular dysfunction [Unknown]
  - Aortic valve calcification [Unknown]
  - Off label use [Unknown]
